FAERS Safety Report 22591813 (Version 1)
Quarter: 2023Q2

REPORT INFORMATION
  Report Type: Spontaneous
  Country: US (occurrence: US)
  Receive Date: 20230612
  Receipt Date: 20230612
  Transmission Date: 20230721
  Serious: No
  Sender: FDA-Public Use
  Company Number: US-RIGEL Pharmaceuticals, INC,- 2023FOS000169

PATIENT
  Sex: Male
  Weight: 86.621 kg

DRUGS (2)
  1. TAVALISSE [Suspect]
     Active Substance: FOSTAMATINIB
     Indication: Immune thrombocytopenia
     Dosage: 150 MG, BID, ONE TABLET BY MOUTH EVERY 12 HOURS
     Route: 048
     Dates: start: 202209
  2. TAVALISSE [Suspect]
     Active Substance: FOSTAMATINIB
     Indication: Hypergammaglobulinaemia

REACTIONS (2)
  - Platelet count decreased [Unknown]
  - Epistaxis [Unknown]
